FAERS Safety Report 24818469 (Version 1)
Quarter: 2025Q1

REPORT INFORMATION
  Report Type: Spontaneous
  Country: US (occurrence: US)
  Receive Date: 20250108
  Receipt Date: 20250108
  Transmission Date: 20250409
  Serious: No
  Sender: NOVAST LABORATORIES LTD
  Company Number: US-NOVAST LABORATORIES INC.-2024NOV000256

PATIENT

DRUGS (1)
  1. LARIN 1/20 [Suspect]
     Active Substance: ETHINYL ESTRADIOL\NORETHINDRONE ACETATE
     Indication: Oral contraception
     Route: 048
     Dates: start: 202405

REACTIONS (2)
  - Medication error [Unknown]
  - Product physical issue [Unknown]
